FAERS Safety Report 7216846-0 (Version None)
Quarter: 2011Q1

REPORT INFORMATION
  Report Type: 
  Country: None (occurrence: None)
  Receive Date: 20110104
  Receipt Date: 20110104
  Transmission Date: 20110831
  Serious: Yes (Life-Threatening)
  Sender: FDA-Public Use
  Company Number: None

PATIENT
  Age: 62 Year
  Sex: Female
  Weight: 77.1115 kg

DRUGS (3)
  1. LOVENOX [Suspect]
  2. PRADAXA [Suspect]
     Indication: PULMONARY EMBOLISM
     Dosage: 1 BID PO
     Route: 048
     Dates: start: 20101216, end: 20101222
  3. WARFARIN SODIUM [Suspect]
     Indication: PULMONARY EMBOLISM
     Dosage: 1 QD PO
     Route: 048
     Dates: start: 20101130, end: 20101213

REACTIONS (4)
  - ABDOMINAL DISTENSION [None]
  - INSOMNIA [None]
  - PRURITUS GENERALISED [None]
  - DEPRESSION [None]
